FAERS Safety Report 9904827 (Version 1)
Quarter: 2014Q1

REPORT INFORMATION
  Report Type: Spontaneous
  Country: US (occurrence: None)
  Receive Date: 20140212
  Receipt Date: 20140212
  Transmission Date: 20141002
  Serious: Yes (Other)
  Sender: FDA-Public Use
  Company Number: None

PATIENT
  Age: 46 Year
  Sex: Female
  Weight: 72.12 kg

DRUGS (1)
  1. TOPIRAMATE [Suspect]
     Indication: MIGRAINE
     Dosage: ONE TABLET TWICE DAILY TAKEN BY MOUTH
     Route: 048
     Dates: start: 20120430, end: 20131030

REACTIONS (3)
  - Paraesthesia [None]
  - Product substitution issue [None]
  - Drug ineffective [None]
